FAERS Safety Report 24773467 (Version 1)
Quarter: 2024Q4

REPORT INFORMATION
  Report Type: Spontaneous
  Country: US (occurrence: US)
  Receive Date: 20241225
  Receipt Date: 20241225
  Transmission Date: 20250114
  Serious: Yes (Life-Threatening, Hospitalization)
  Sender: DR REDDYS
  Company Number: None

PATIENT
  Age: 84 Year
  Sex: Female

DRUGS (2)
  1. LEVOTHYROXINE [Suspect]
     Active Substance: LEVOTHYROXINE
     Indication: Decompensated hypothyroidism
     Dosage: 1 DOSE (100 MICROGRAM) AND RECEIVED ADDITIONAL DOSE WITHIN FEW HOURS (100 MICROGRAM)
  2. AMIODARONE [Concomitant]
     Active Substance: AMIODARONE
     Indication: Atrial fibrillation

REACTIONS (3)
  - Stress cardiomyopathy [Recovering/Resolving]
  - Condition aggravated [Recovering/Resolving]
  - Shock [Recovering/Resolving]
